FAERS Safety Report 22612229 (Version 1)
Quarter: 2023Q2

REPORT INFORMATION
  Report Type: Report from Study
  Country: CN (occurrence: CN)
  Receive Date: 20230617
  Receipt Date: 20230617
  Transmission Date: 20230722
  Serious: Yes (Other)
  Sender: FDA-Public Use
  Company Number: CN-AUROBINDO-AUR-APL-2023-041893

PATIENT
  Age: 63 Year
  Sex: Female

DRUGS (23)
  1. MELPHALAN [Suspect]
     Active Substance: MELPHALAN
     Indication: Plasma cell myeloma
     Dosage: UNK
     Route: 065
     Dates: start: 20190412
  2. ADRIAMYCIN [Suspect]
     Active Substance: DOXORUBICIN HYDROCHLORIDE
     Indication: Plasma cell myeloma
     Dosage: UNK
     Route: 065
     Dates: start: 20180403
  3. BENDAMUSTINE [Suspect]
     Active Substance: BENDAMUSTINE
     Indication: Plasma cell myeloma
     Dosage: NINTH-LINE THERAPY
     Route: 065
     Dates: start: 20200328
  4. BORTEZOMIB [Suspect]
     Active Substance: BORTEZOMIB
     Indication: Plasma cell myeloma
     Dosage: 4 CYCLES(SECOND-LINE THERAPY)
     Route: 065
     Dates: start: 20171206
  5. BORTEZOMIB [Suspect]
     Active Substance: BORTEZOMIB
     Dosage: NINTH-LINE THERAPY
     Route: 065
     Dates: start: 20200328
  6. CYCLOPHOSPHAMIDE [Suspect]
     Active Substance: CYCLOPHOSPHAMIDE
     Indication: Plasma cell myeloma
     Dosage: SECOND-LINE THERAPY
     Route: 065
     Dates: start: 20171206
  7. CYCLOPHOSPHAMIDE [Suspect]
     Active Substance: CYCLOPHOSPHAMIDE
     Dosage: FIFTH-LINE THERAPY
     Route: 065
     Dates: start: 20181126
  8. CYCLOPHOSPHAMIDE [Suspect]
     Active Substance: CYCLOPHOSPHAMIDE
     Dosage: EIGHTH-LINE THERAPY
     Route: 065
     Dates: start: 20191010
  9. DARATUMUMAB [Suspect]
     Active Substance: DARATUMUMAB
     Indication: Plasma cell myeloma
     Dosage: EIGHTH-LINE THERAPY
     Route: 065
     Dates: start: 20191010
  10. DEXAMETHASONE [Suspect]
     Active Substance: DEXAMETHASONE
     Indication: Plasma cell myeloma
     Dosage: 4 CYCLES(SECOND-LINE THERAPY)
     Route: 065
     Dates: start: 20171206
  11. DEXAMETHASONE [Suspect]
     Active Substance: DEXAMETHASONE
     Dosage: THIRD-LINE THERAPY
     Route: 065
     Dates: start: 20180403
  12. DEXAMETHASONE [Suspect]
     Active Substance: DEXAMETHASONE
     Dosage: FOURTH-LINE THERAPY
     Route: 065
     Dates: start: 20180829
  13. DEXAMETHASONE [Suspect]
     Active Substance: DEXAMETHASONE
     Dosage: FIFTH-LINE THERAPY
     Route: 065
     Dates: start: 20181126
  14. DEXAMETHASONE [Suspect]
     Active Substance: DEXAMETHASONE
     Dosage: EIGHTH-LINE THERAPY
     Route: 065
     Dates: start: 20191010
  15. DEXAMETHASONE [Suspect]
     Active Substance: DEXAMETHASONE
     Dosage: NINTH-LINE THERAPY
     Route: 065
     Dates: start: 20200328
  16. IXAZOMIB [Suspect]
     Active Substance: IXAZOMIB
     Indication: Plasma cell myeloma
     Dosage: FOURTH-LINE THERAPY
     Route: 065
     Dates: start: 20180829
  17. IXAZOMIB [Suspect]
     Active Substance: IXAZOMIB
     Dosage: FIFTH-LINE THERAPY
     Route: 065
     Dates: start: 20181126
  18. LENALIDOMIDE [Suspect]
     Active Substance: LENALIDOMIDE
     Indication: Plasma cell myeloma
     Dosage: A THIRD-LINE THERAPY
     Route: 065
     Dates: start: 20180403
  19. LENALIDOMIDE [Suspect]
     Active Substance: LENALIDOMIDE
     Dosage: A FOURTH-LINE THERAPY
     Route: 065
     Dates: start: 20180829
  20. POMALIDOMIDE [Suspect]
     Active Substance: POMALIDOMIDE
     Indication: Plasma cell myeloma
     Dosage: SEVENTH-LINE THERAPY
     Route: 065
     Dates: start: 20190626
  21. PREDNISONE [Suspect]
     Active Substance: PREDNISONE
     Indication: Plasma cell myeloma
     Dosage: UNK
     Route: 065
     Dates: start: 20190412
  22. THALIDOMIDE [Suspect]
     Active Substance: THALIDOMIDE
     Indication: Plasma cell myeloma
     Dosage: EIGHTH-LINE THERAPY
     Route: 065
     Dates: start: 20191010
  23. TUCIDINOSTAT [Suspect]
     Active Substance: TUCIDINOSTAT
     Indication: Plasma cell myeloma
     Dosage: UNK
     Route: 065
     Dates: start: 20190412

REACTIONS (1)
  - Drug ineffective [Unknown]
